FAERS Safety Report 18619199 (Version 1)
Quarter: 2020Q4

REPORT INFORMATION
  Report Type: Spontaneous
  Country: US (occurrence: US)
  Receive Date: 20201215
  Receipt Date: 20201215
  Transmission Date: 20210114
  Serious: Yes (Other)
  Sender: FDA-Public Use
  Company Number: US-TEVA-2020-US-1859489

PATIENT
  Sex: Female

DRUGS (1)
  1. TRAZODONE [Suspect]
     Active Substance: TRAZODONE HYDROCHLORIDE
     Indication: INSOMNIA
     Dosage: SINCE 2015 OR 2016 (4-5 YEARS).
     Route: 065
     Dates: end: 20201111

REACTIONS (3)
  - Surgery [Unknown]
  - Therapy interrupted [Unknown]
  - Insomnia [Unknown]

NARRATIVE: CASE EVENT DATE: 2020
